FAERS Safety Report 18086382 (Version 4)
Quarter: 2020Q4

REPORT INFORMATION
  Report Type: Spontaneous
  Country: TW (occurrence: TW)
  Receive Date: 20200728
  Receipt Date: 20201023
  Transmission Date: 20210113
  Serious: Yes (Hospitalization)
  Sender: FDA-Public Use
  Company Number: TW-AMGEN-TWNSP2020121286

PATIENT
  Age: 54 Year
  Sex: Female

DRUGS (2)
  1. ENBREL [Suspect]
     Active Substance: ETANERCEPT
     Indication: RHEUMATOID ARTHRITIS
     Dosage: 50 MG QW
     Route: 058
     Dates: start: 20190220
  2. ENBREL [Suspect]
     Active Substance: ETANERCEPT
     Dosage: 50 MG QW
     Route: 058
     Dates: start: 20201021

REACTIONS (2)
  - Arthropathy [Not Recovered/Not Resolved]
  - Impaired healing [Recovered/Resolved]
